FAERS Safety Report 6311393-2 (Version None)
Quarter: 2009Q3

REPORT INFORMATION
  Report Type: 
  Country: None (occurrence: None)
  Receive Date: 20090817
  Receipt Date: 20090805
  Transmission Date: 20100115
  Serious: Yes (Other)
  Sender: FDA-Public Use
  Company Number: JP-PFIZER INC-2009245741

PATIENT
  Age: 55 Year

DRUGS (6)
  1. SUNITINIB MALATE [Suspect]
     Indication: RENAL CELL CARCINOMA
     Dosage: 50 MG, 1X/DAY
     Route: 048
     Dates: start: 20090302, end: 20090329
  2. AMLODIPINE [Concomitant]
     Dosage: UNK
     Route: 048
  3. VALSARTAN [Concomitant]
     Dosage: UNK
     Route: 048
  4. FERROMIA [Concomitant]
     Dosage: UNK
     Route: 048
  5. ALTAT [Concomitant]
     Dosage: UNK
     Route: 048
  6. MOBIC [Concomitant]
     Dosage: 10 MG, 1X/DAY
     Route: 048
     Dates: start: 20080401

REACTIONS (5)
  - DECREASED APPETITE [None]
  - DIARRHOEA [None]
  - HYPOTHYROIDISM [None]
  - MALAISE [None]
  - PLATELET COUNT DECREASED [None]
